FAERS Safety Report 7318389-2 (Version None)
Quarter: 2011Q1

REPORT INFORMATION
  Report Type: 
  Country: None (occurrence: None)
  Receive Date: 20110228
  Receipt Date: 20110216
  Transmission Date: 20110831
  Serious: Yes (Other)
  Sender: FDA-Public Use
  Company Number: CA-ELI_LILLY_AND_COMPANY-CA201102004758

PATIENT
  Age: 48 Year
  Sex: Male

DRUGS (6)
  1. VITAMIN D [Concomitant]
  2. CALCIUM [Concomitant]
  3. TENOFOVIR [Concomitant]
  4. PRILOSEC [Concomitant]
  5. FORTEO [Suspect]
     Indication: OSTEOPOROSIS
     Dosage: 20 UG, DAILY (1/D)
     Route: 058
     Dates: start: 20090813
  6. TACROLIMUS [Concomitant]

REACTIONS (2)
  - PROTEIN URINE [None]
  - RENAL IMPAIRMENT [None]
